FAERS Safety Report 5189343-4 (Version None)
Quarter: 2006Q4

REPORT INFORMATION
  Report Type: 
  Country: None (occurrence: None)
  Receive Date: 20061215
  Receipt Date: 20061201
  Transmission Date: 20070319
  Serious: Yes (Life-Threatening)
  Sender: FDA-Public Use
  Company Number: 15299

PATIENT
  Age: 64 Year
  Sex: Female

DRUGS (2)
  1. CARBOPLATIN [Suspect]
     Dosage: 120 MG IV
     Route: 042
     Dates: start: 20060702, end: 20061120
  2. ANZATAX [Suspect]
     Dates: start: 20060702, end: 20061120

REACTIONS (1)
  - ANAPHYLACTIC SHOCK [None]
